FAERS Safety Report 13801655 (Version 1)
Quarter: 2017Q3

REPORT INFORMATION
  Report Type: Spontaneous
  Country: US (occurrence: US)
  Receive Date: 20170727
  Receipt Date: 20170727
  Transmission Date: 20171127
  Serious: Yes (Other)
  Sender: FDA-Public Use
  Company Number: US-SA-2017SA134476

PATIENT
  Age: 68 Year
  Sex: Male

DRUGS (3)
  1. TOUJEO [Suspect]
     Active Substance: INSULIN GLARGINE
     Indication: TYPE 1 DIABETES MELLITUS
     Dosage: DOSE:45 UNIT(S)
     Route: 051
  2. MAGNESIUM [Concomitant]
     Active Substance: MAGNESIUM
  3. SOLOSTAR [Concomitant]
     Active Substance: DEVICE
     Indication: TYPE 1 DIABETES MELLITUS

REACTIONS (9)
  - Flushing [Not Recovered/Not Resolved]
  - Feeling hot [Not Recovered/Not Resolved]
  - Fatigue [Unknown]
  - Expired product administered [Unknown]
  - Myocardial infarction [Unknown]
  - Feeling abnormal [Unknown]
  - Chest discomfort [Unknown]
  - Product use issue [Unknown]
  - Blood glucose increased [Unknown]
